FAERS Safety Report 14306515 (Version 1)
Quarter: 2017Q4

REPORT INFORMATION
  Report Type: Spontaneous
  Country: FR (occurrence: FR)
  Receive Date: 20171220
  Receipt Date: 20171220
  Transmission Date: 20180321
  Serious: Yes (Hospitalization, Other)
  Sender: FDA-Public Use
  Company Number: FR-MERCK KGAA-2037443

PATIENT
  Age: 54 Year
  Sex: Female
  Weight: 55 kg

DRUGS (5)
  1. RANITIDINE. [Concomitant]
     Active Substance: RANITIDINE
  2. NOVOTHYROX [Suspect]
     Active Substance: LEVOTHYROXINE SODIUM
     Indication: PRODUCT USED FOR UNKNOWN INDICATION
     Dates: start: 20170518, end: 201709
  3. EFIENT [Concomitant]
     Active Substance: PRASUGREL HYDROCHLORIDE
  4. ATENOLOL. [Concomitant]
     Active Substance: ATENOLOL
  5. DIFFU K [Concomitant]
     Active Substance: POTASSIUM CHLORIDE

REACTIONS (17)
  - Apathy [None]
  - Memory impairment [None]
  - Myalgia [None]
  - Muscle spasms [None]
  - Confusional state [None]
  - Trigger finger [None]
  - Loss of personal independence in daily activities [None]
  - Brain neoplasm [None]
  - Cognitive disorder [None]
  - Fatigue [None]
  - Blood magnesium decreased [None]
  - Pain in extremity [None]
  - Weight decreased [None]
  - Renal tubular disorder [None]
  - Visual impairment [None]
  - Micturition urgency [None]
  - Migraine [None]

NARRATIVE: CASE EVENT DATE: 2017
